FAERS Safety Report 16173694 (Version 2)
Quarter: 2019Q2

REPORT INFORMATION
  Report Type: Spontaneous
  Country: US (occurrence: US)
  Receive Date: 20190409
  Receipt Date: 20190415
  Transmission Date: 20190711
  Serious: Yes (Hospitalization)
  Sender: FDA-Public Use
  Company Number: US-ALKERMES INC.-ALK-2019-001841

PATIENT
  Age: 40 Year
  Sex: Male

DRUGS (1)
  1. VIVITROL [Suspect]
     Active Substance: NALTREXONE
     Indication: ALCOHOLISM
     Dosage: 380 MG, QMO
     Route: 030
     Dates: start: 20190320

REACTIONS (5)
  - Anxiety [Unknown]
  - Petit mal epilepsy [Not Recovered/Not Resolved]
  - Blood pressure decreased [Recovered/Resolved]
  - Craniocerebral injury [Not Recovered/Not Resolved]
  - Thought blocking [Not Recovered/Not Resolved]

NARRATIVE: CASE EVENT DATE: 2019
